FAERS Safety Report 5018825-0 (Version None)
Quarter: 2006Q2

REPORT INFORMATION
  Report Type: 
  Country: None (occurrence: None)
  Receive Date: 20060606
  Receipt Date: 20060529
  Transmission Date: 20061013
  Serious: Yes (Death)
  Sender: FDA-Public Use
  Company Number: FR-JNJFOC-20060505173

PATIENT
  Age: 78 Year
  Sex: Female

DRUGS (4)
  1. OFLOCET [Suspect]
     Indication: LOWER RESPIRATORY TRACT INFECTION
     Route: 042
     Dates: start: 20060213, end: 20060214
  2. OFLOCET [Suspect]
     Route: 048
     Dates: start: 20060214, end: 20060215
  3. RISPERDAL [Suspect]
     Indication: AGITATION
     Route: 048
     Dates: start: 20060214, end: 20060215
  4. ROCEPHIN [Suspect]
     Indication: LOWER RESPIRATORY TRACT INFECTION
     Route: 042
     Dates: start: 20060213, end: 20060215

REACTIONS (1)
  - CONVULSION [None]
